FAERS Safety Report 17714533 (Version 1)
Quarter: 2020Q2

REPORT INFORMATION
  Report Type: Spontaneous
  Country: US (occurrence: US)
  Receive Date: 20200427
  Receipt Date: 20200427
  Transmission Date: 20200714
  Serious: Yes (Other)
  Sender: FDA-Public Use
  Company Number: US-PFIZER INC-2020165089

PATIENT
  Age: 72 Year
  Sex: Male

DRUGS (1)
  1. PRECEDEX [Suspect]
     Active Substance: DEXMEDETOMIDINE HYDROCHLORIDE
     Indication: DELIRIUM
     Dosage: 0.2 ?G/KG/HOUR

REACTIONS (3)
  - Off label use [Unknown]
  - Diabetes insipidus [Unknown]
  - Product use in unapproved indication [Unknown]
